FAERS Safety Report 4741919-1 (Version None)
Quarter: 2005Q3

REPORT INFORMATION
  Report Type: 
  Country: None (occurrence: None)
  Receive Date: 20050801
  Receipt Date: 20050125
  Transmission Date: 20060218
  Serious: Yes (Hospitalization)
  Sender: FDA-Public Use
  Company Number: 211894

PATIENT
  Age: 72 Year
  Sex: Female

DRUGS (10)
  1. HERCEPTIN [Suspect]
     Indication: BREAST CANCER METASTATIC
     Dosage: 4 MG/KG, Q3W, INTRAVENOUS
     Route: 042
  2. PLAVIX [Concomitant]
  3. ASPIRIN [Concomitant]
  4. NORVASC [Concomitant]
  5. AROMASIN [Concomitant]
  6. ZOCOR [Concomitant]
  7. ATENOLOL [Concomitant]
  8. LISINOPRIL [Concomitant]
  9. LEVOTHROID [Concomitant]
  10. FARESTON [Concomitant]

REACTIONS (1)
  - PERIPHERAL EMBOLISM [None]
